FAERS Safety Report 5694688-5 (Version None)
Quarter: 2008Q2

REPORT INFORMATION
  Report Type: 
  Country: None (occurrence: None)
  Receive Date: 20080404
  Receipt Date: 20080401
  Transmission Date: 20081010
  Serious: Yes (Other)
  Sender: FDA-Public Use
  Company Number: B0361593A

PATIENT
  Age: 29 Year
  Sex: Female

DRUGS (2)
  1. PAROXETINE HCL [Suspect]
     Route: 065
     Dates: start: 20000713
  2. PROZAC [Concomitant]
     Route: 065
     Dates: start: 20021029

REACTIONS (11)
  - AGGRESSION [None]
  - CONFUSIONAL STATE [None]
  - DEPRESSED MOOD [None]
  - FATIGUE [None]
  - FEELING ABNORMAL [None]
  - HEADACHE [None]
  - HYPERHIDROSIS [None]
  - NIGHTMARE [None]
  - PAIN [None]
  - PARAESTHESIA [None]
  - WITHDRAWAL SYNDROME [None]
